FAERS Safety Report 5996949-9 (Version None)
Quarter: 2008Q4

REPORT INFORMATION
  Report Type: 
  Country: None (occurrence: None)
  Receive Date: 20081212
  Receipt Date: 20081203
  Transmission Date: 20090506
  Serious: Yes (Other)
  Sender: FDA-Public Use
  Company Number: US-GENENTECH-273141

PATIENT
  Sex: Female

DRUGS (3)
  1. BEVACIZUMAB [Suspect]
     Indication: METASTATIC MALIGNANT MELANOMA
     Dosage: 15 MG/KG, Q14D
     Route: 042
     Dates: start: 20060515
  2. INTERFERON ALFA [Suspect]
     Indication: METASTATIC MALIGNANT MELANOMA
     Dosage: 5 MU/M2, DAYS 1,3,5,8,10,12/Q14D
     Route: 058
     Dates: start: 20060515
  3. INTERFERON ALFA [Suspect]
     Dosage: 10 MU/M2, DAYS 1,3,5,8,10,12/Q14D
     Route: 058
     Dates: start: 20060605

REACTIONS (2)
  - DEPRESSION [None]
  - MYALGIA [None]
